FAERS Safety Report 15613569 (Version 1)
Quarter: 2018Q4

REPORT INFORMATION
  Report Type: Report from Study
  Country: US (occurrence: US)
  Receive Date: 20181113
  Receipt Date: 20181113
  Transmission Date: 20190205
  Serious: Yes (Other)
  Sender: FDA-Public Use
  Company Number: US-TAKEDA-2018TUS027076

PATIENT
  Sex: Female

DRUGS (2)
  1. PONATINIB [Suspect]
     Active Substance: PONATINIB
     Indication: NEOPLASM MALIGNANT
     Dosage: 15 MG, QD
     Route: 048
     Dates: start: 20180822
  2. PONATINIB [Suspect]
     Active Substance: PONATINIB
     Indication: GASTROINTESTINAL STROMAL TUMOUR
     Dosage: 30 MG, QD
     Route: 048

REACTIONS (11)
  - Heart rate increased [Unknown]
  - Cough [Unknown]
  - Neoplasm progression [Unknown]
  - Blood pressure increased [Unknown]
  - Fatigue [Unknown]
  - Dizziness [Unknown]
  - Off label use [Unknown]
  - Abdominal pain [Unknown]
  - Back pain [Unknown]
  - Feeding disorder [Unknown]
  - Drug ineffective [Unknown]
